FAERS Safety Report 16572459 (Version 1)
Quarter: 2019Q3

REPORT INFORMATION
  Report Type: Spontaneous
  Country: ES (occurrence: ES)
  Receive Date: 20190715
  Receipt Date: 20190715
  Transmission Date: 20191004
  Serious: Yes (Hospitalization, Other)
  Sender: FDA-Public Use
  Company Number: ES-MYLANLABS-2019M1064809

PATIENT
  Age: 19 Year
  Sex: Male
  Weight: 55 kg

DRUGS (8)
  1. ISOTRETINOIN. [Suspect]
     Active Substance: ISOTRETINOIN
     Dosage: 10 MG FIRST MONTHS AND 20 MG LATER
     Route: 048
  2. PREDNISONE. [Concomitant]
     Active Substance: PREDNISONE
     Dosage: 15 MG, QD (1/DAY)
     Route: 065
     Dates: start: 201212, end: 201301
  3. GENTAMICIN. [Concomitant]
     Active Substance: GENTAMICIN
     Indication: ACNE CONGLOBATA
     Dosage: UNK
     Route: 061
  4. PREDNISONE. [Concomitant]
     Active Substance: PREDNISONE
     Dosage: 30 MG DAILY, WHICH GRADUALLY DECREASED AS FOR MONTHS, MAINTAINING 5 MG EVERY 48 H, UNTIL THE END OF
  5. ISOTRETINOIN. [Suspect]
     Active Substance: ISOTRETINOIN
     Indication: ACNE CONGLOBATA
     Dosage: 20 MG, UNKNOWN
     Route: 048
     Dates: start: 201211, end: 201303
  6. VITAMIN D                          /00107901/ [Concomitant]
     Active Substance: ERGOCALCIFEROL
     Indication: PRODUCT USED FOR UNKNOWN INDICATION
     Dosage: UNK
     Route: 065
  7. DEXAMETHASON                       /00016001/ [Concomitant]
     Active Substance: DEXAMETHASONE
     Indication: ACNE CONGLOBATA
     Dosage: UNK
     Route: 061
  8. CALCIUM [Concomitant]
     Active Substance: CALCIUM
     Indication: PRODUCT USED FOR UNKNOWN INDICATION
     Dosage: UNK UNK, UNKNOWN
     Route: 065

REACTIONS (6)
  - Leukocytosis [Unknown]
  - Myalgia [Recovered/Resolved]
  - Protein total increased [Unknown]
  - Hypertrophic scar [Not Recovered/Not Resolved]
  - Acne fulminans [Recovering/Resolving]
  - Motor dysfunction [Unknown]

NARRATIVE: CASE EVENT DATE: 201302
